FAERS Safety Report 9513326 (Version 1)
Quarter: 2013Q1

REPORT INFORMATION
  Report Type: Spontaneous
  Country: US (occurrence: None)
  Receive Date: 20130305
  Receipt Date: 20130305
  Transmission Date: 20140127
  Serious: No
  Sender: FDA-Public Use
  Company Number: 163-21880-12042428

PATIENT
  Age: 84 Year
  Sex: Female

DRUGS (2)
  1. REVLIMID (LENALIDOMIDE) (CAPSULES) [Suspect]
     Indication: PLASMA CELL MYELOMA
     Dosage: 5MG, DAILY FOR 28 DAYS, PO
     Route: 048
     Dates: start: 20090925, end: 201204
  2. POSTASSIUM CHLORIDE (POTASSIUM CHLORIDE) [Concomitant]

REACTIONS (3)
  - Gastrointestinal infection [None]
  - Vomiting [None]
  - Diarrhoea [None]
